FAERS Safety Report 8574784-5 (Version None)
Quarter: 2012Q3

REPORT INFORMATION
  Report Type: 
  Country: None (occurrence: None)
  Receive Date: 20120807
  Receipt Date: 20120706
  Transmission Date: 20120928
  Serious: No
  Sender: FDA-Public Use
  Company Number: US-009507513-1207USA003197

PATIENT

DRUGS (11)
  1. VICTRELIS [Suspect]
     Dosage: 800 MG, TID
     Route: 048
  2. FLEXERIL [Concomitant]
     Dosage: 10 MG, UNK
  3. PAXIL [Concomitant]
     Dosage: 10 MG, UNK
  4. XANAX [Concomitant]
     Dosage: 1 MG, UNK
  5. WELCHOL [Concomitant]
     Dosage: 625 MG, UNK
  6. LEVOTHYROXINE SODIUM [Concomitant]
     Dosage: 100 MICROGRAM, UNK
  7. ACIPHEX [Concomitant]
     Dosage: 20 MG, UNK
  8. PEGASYS [Concomitant]
     Dosage: 180 MICROGRAM, QM
  9. METFORMIN HYDROCHLORIDE [Concomitant]
     Dosage: 500 MG, UNK
  10. PERCOCET [Concomitant]
     Dosage: 7.5-3.25M
  11. REBETOL [Concomitant]
     Dosage: 200 MG, UNK

REACTIONS (1)
  - ADVERSE EVENT [None]
